FAERS Safety Report 19953213 (Version 1)
Quarter: 2021Q4

REPORT INFORMATION
  Report Type: Report from Study
  Country: US (occurrence: US)
  Receive Date: 20211013
  Receipt Date: 20211013
  Transmission Date: 20220303
  Serious: Yes (Death, Other)
  Sender: FDA-Public Use
  Company Number: 2021A767177

PATIENT
  Age: 23257 Day

DRUGS (1)
  1. BRILINTA [Suspect]
     Active Substance: TICAGRELOR
     Route: 048

REACTIONS (3)
  - Death [Fatal]
  - Cerebrovascular accident [Unknown]
  - Brain injury [Unknown]

NARRATIVE: CASE EVENT DATE: 20210912
